FAERS Safety Report 7655466-0 (Version None)
Quarter: 2011Q3

REPORT INFORMATION
  Report Type: 
  Country: None (occurrence: None)
  Receive Date: 20110804
  Receipt Date: 20110727
  Transmission Date: 20111222
  Serious: Yes (Other)
  Sender: FDA-Public Use
  Company Number: AU-ASTELLAS-2011JP005173

PATIENT
  Sex: Male

DRUGS (1)
  1. TACROLIMUS [Suspect]
     Route: 065

REACTIONS (4)
  - HEPATITIS [None]
  - TRANSAMINASES ABNORMAL [None]
  - BIOPSY LIVER ABNORMAL [None]
  - GRANULOMATOUS LIVER DISEASE [None]
